FAERS Safety Report 9633545 (Version 4)
Quarter: 2014Q1

REPORT INFORMATION
  Report Type: Spontaneous
  Country: JP (occurrence: JP)
  Receive Date: 20131021
  Receipt Date: 20140321
  Transmission Date: 20141002
  Serious: Yes (Death, Hospitalization)
  Sender: FDA-Public Use
  Company Number: PHHY2013JP116934

PATIENT
  Age: 79 Year
  Sex: Male
  Weight: 54 kg

DRUGS (5)
  1. DESFERAL [Suspect]
     Indication: IRON OVERLOAD
     Dosage: 1000 MG, DAILY
     Route: 030
     Dates: start: 20120621, end: 20120827
  2. THYRADIN S [Concomitant]
     Indication: AUTOIMMUNE THYROIDITIS
     Dosage: 75 UG, UNK
     Route: 048
     Dates: start: 20120826
  3. CALBLOCK [Concomitant]
     Indication: HYPERTENSION
     Dosage: 8 MG, UNK
     Route: 048
     Dates: start: 20120826
  4. CRAVIT [Concomitant]
     Indication: ENTERITIS INFECTIOUS
     Dosage: 250 MG, UNK
     Route: 048
     Dates: start: 20120816, end: 20120822
  5. BIOFERMIN R [Concomitant]
     Indication: ENTEROCOLITIS INFECTIOUS
     Dosage: 3 G, UNK
     Route: 048
     Dates: start: 20120816, end: 20120822

REACTIONS (8)
  - Respiratory failure [Fatal]
  - Acute myeloid leukaemia [Fatal]
  - Zygomycosis [Fatal]
  - Pneumonia [Unknown]
  - Cerebral haemorrhage [Unknown]
  - Pulmonary haemorrhage [Unknown]
  - Muscular weakness [Unknown]
  - Enteritis infectious [Recovering/Resolving]
